FAERS Safety Report 5556941-5 (Version None)
Quarter: 2007Q4

REPORT INFORMATION
  Report Type: 
  Country: None (occurrence: None)
  Receive Date: 20071211
  Receipt Date: 20071211
  Transmission Date: 20080405
  Serious: No
  Sender: FDA-Public Use
  Company Number: None

PATIENT
  Sex: Male
  Weight: 72.5755 kg

DRUGS (2)
  1. ACTOS [Suspect]
     Indication: DIABETES MELLITUS
     Dosage: 1 PILL 3 TIMES DAILY EVERYDAY
     Dates: start: 20060427, end: 20060908
  2. ACTOPLUS MET [Suspect]
     Indication: DIABETES MELLITUS
     Dosage: 1 PILL AT NIGHT EVERYNIGHT04
     Dates: start: 20060908, end: 20071207

REACTIONS (1)
  - MACULAR OEDEMA [None]
